FAERS Safety Report 19484421 (Version 1)
Quarter: 2021Q3

REPORT INFORMATION
  Report Type: Report from Study
  Country: US (occurrence: US)
  Receive Date: 20210701
  Receipt Date: 20210701
  Transmission Date: 20211014
  Serious: Yes (Other)
  Sender: FDA-Public Use
  Company Number: US-TAKEDA-2019TUS022494

PATIENT
  Sex: Male

DRUGS (8)
  1. PONATINIB [Suspect]
     Active Substance: PONATINIB
     Dosage: 15 MILLIGRAM, QD
     Route: 048
  2. ACYCLOVIR                          /00587301/ [Concomitant]
     Active Substance: ACYCLOVIR
     Dosage: UNK
  3. PONATINIB [Suspect]
     Active Substance: PONATINIB
     Dosage: 15 MILLIGRAM, QD
     Route: 048
  4. ATORVASTATIN CALCIUM. [Concomitant]
     Active Substance: ATORVASTATIN CALCIUM
     Dosage: UNK
  5. DULOXETINE HCL [Concomitant]
     Active Substance: DULOXETINE HYDROCHLORIDE
     Dosage: UNK
  6. PONATINIB [Suspect]
     Active Substance: PONATINIB
     Indication: ACUTE LYMPHOCYTIC LEUKAEMIA
     Dosage: 30 MILLIGRAM, QD
     Route: 048
     Dates: start: 20180308
  7. CARVEDILOL. [Concomitant]
     Active Substance: CARVEDILOL
     Dosage: UNK
  8. PONATINIB [Suspect]
     Active Substance: PONATINIB
     Dosage: 15 MILLIGRAM, QOD
     Route: 048
     Dates: start: 2018

REACTIONS (20)
  - Abdominal distension [Unknown]
  - Dizziness [Unknown]
  - Gastrointestinal disorder [Unknown]
  - Bacteraemia [Unknown]
  - Febrile neutropenia [Unknown]
  - Asthenia [Unknown]
  - Chills [Unknown]
  - Erectile dysfunction [Unknown]
  - Neuropathy peripheral [Unknown]
  - Uveitis [Unknown]
  - Insomnia [Unknown]
  - Coronary artery disease [Unknown]
  - Nausea [Unknown]
  - Iritis [Unknown]
  - Pancreatitis acute [Unknown]
  - Hyperlipidaemia [Unknown]
  - Off label use [Unknown]
  - Pancytopenia [Unknown]
  - Depression [Unknown]
  - Product dose omission issue [Unknown]
